FAERS Safety Report 5296483-8 (Version None)
Quarter: 2007Q2

REPORT INFORMATION
  Report Type: 
  Country: None (occurrence: None)
  Receive Date: 20070413
  Receipt Date: 20070411
  Transmission Date: 20071010
  Serious: Yes (Life-Threatening)
  Sender: FDA-Public Use
  Company Number: CN-SANOFI-SYNTHELABO-F01200700443

PATIENT
  Sex: Male
  Weight: 53 kg

DRUGS (5)
  1. RAMOSETRON [Concomitant]
     Route: 042
     Dates: start: 20070324, end: 20070324
  2. CAPECITABINE [Suspect]
     Dosage: DAYS 1-15 (2 WEEKS ON TREATMENT, 1 WEEK REST)
     Route: 048
     Dates: start: 20070324, end: 20070330
  3. OXALIPLATIN [Suspect]
     Indication: GASTRIC CANCER
     Route: 041
     Dates: start: 20070324, end: 20070324
  4. RED BLOOD CELLS [Concomitant]
     Dates: start: 20070403, end: 20070403
  5. PLATELETS [Concomitant]
     Dates: start: 20070403, end: 20070403

REACTIONS (2)
  - DISSEMINATED INTRAVASCULAR COAGULATION [None]
  - GASTROINTESTINAL HAEMORRHAGE [None]
